FAERS Safety Report 12077225 (Version 1)
Quarter: 2016Q1

REPORT INFORMATION
  Report Type: Spontaneous
  Country: US (occurrence: US)
  Receive Date: 20160215
  Receipt Date: 20160215
  Transmission Date: 20160526
  Serious: No
  Sender: FDA-Public Use
  Company Number: US-GLAXOSMITHKLINE-US2016018313

PATIENT
  Sex: Female

DRUGS (1)
  1. FLOVENT [Suspect]
     Active Substance: FLUTICASONE PROPIONATE
     Indication: PNEUMONIA
     Dosage: 2 PUFF(S), QID

REACTIONS (3)
  - Device use error [Unknown]
  - Inappropriate schedule of drug administration [Unknown]
  - Off label use [Unknown]
